FAERS Safety Report 7852573-4 (Version None)
Quarter: 2011Q4

REPORT INFORMATION
  Report Type: 
  Country: None (occurrence: None)
  Receive Date: 20111026
  Receipt Date: 20111020
  Transmission Date: 20120403
  Serious: Yes (Hospitalization)
  Sender: FDA-Public Use
  Company Number: CA-GLAXOSMITHKLINE-A0904235A

PATIENT
  Sex: Female

DRUGS (9)
  1. MAGNESIUM [Concomitant]
  2. POTASSIUM [Concomitant]
  3. ATIVAN [Concomitant]
  4. XELODA [Suspect]
     Indication: PRODUCT USED FOR UNKNOWN INDICATION
     Route: 065
  5. PANTOPRAZOLE SODIUM [Concomitant]
  6. TYKERB [Suspect]
     Indication: BREAST CANCER METASTATIC
     Dosage: 1250MG PER DAY
     Route: 048
     Dates: start: 20090913
  7. FEMARA [Concomitant]
  8. FRAGMIN [Concomitant]
  9. DOMPERIDONE [Concomitant]

REACTIONS (9)
  - EAR INFECTION [None]
  - DRY SKIN [None]
  - BLOOD CALCIUM DECREASED [None]
  - WOUND [None]
  - RADIATION SKIN INJURY [None]
  - BLOOD POTASSIUM DECREASED [None]
  - WOUND INFECTION [None]
  - ERYTHEMA [None]
  - BREAST DISCHARGE [None]
